FAERS Safety Report 6161409-1 (Version None)
Quarter: 2009Q2

REPORT INFORMATION
  Report Type: 
  Country: None (occurrence: None)
  Receive Date: 20090421
  Receipt Date: 20090418
  Transmission Date: 20091009
  Serious: Yes (Hospitalization)
  Sender: FDA-Public Use
  Company Number: JP-ASTRAZENECA-2009AP02696

PATIENT
  Age: 70 Year
  Sex: Female

DRUGS (1)
  1. OMEPRAL TABLETS 20 [Suspect]
     Indication: GASTRIC ULCER
     Route: 048
     Dates: start: 20090401, end: 20090401

REACTIONS (2)
  - PLATELET COUNT DECREASED [None]
  - WHITE BLOOD CELL COUNT DECREASED [None]
